FAERS Safety Report 17698898 (Version 2)
Quarter: 2020Q2

REPORT INFORMATION
  Report Type: Spontaneous
  Country: PT (occurrence: PT)
  Receive Date: 20200423
  Receipt Date: 20200630
  Transmission Date: 20200714
  Serious: Yes (Life-Threatening, Hospitalization)
  Sender: FDA-Public Use
  Company Number: PHHY2018PT125137

PATIENT
  Age: 78 Year
  Sex: Male

DRUGS (1)
  1. CIPROFLOXACIN. [Suspect]
     Active Substance: CIPROFLOXACIN
     Indication: URINARY TRACT INFECTION
     Dosage: UNK
     Route: 065

REACTIONS (20)
  - Rash [Recovering/Resolving]
  - Rash macular [Recovering/Resolving]
  - Mouth ulceration [Recovered/Resolved]
  - Systemic inflammatory response syndrome [Unknown]
  - Hyperaemia [Recovered/Resolved]
  - Skin lesion [Unknown]
  - Stevens-Johnson syndrome [Recovered/Resolved]
  - Superinfection bacterial [Unknown]
  - Bacterial infection [Unknown]
  - Pruritus [Unknown]
  - Rash pruritic [Recovered/Resolved]
  - Odynophagia [Recovered/Resolved]
  - Pharyngeal erythema [Recovered/Resolved]
  - Pyrexia [Recovered/Resolved]
  - Actinomycotic skin infection [Unknown]
  - Toxic epidermal necrolysis [Recovered/Resolved]
  - Condition aggravated [Unknown]
  - Rash maculo-papular [Recovered/Resolved]
  - Cough [Recovered/Resolved]
  - Fatigue [Recovered/Resolved]

NARRATIVE: CASE EVENT DATE: 20181001
